APPROVED DRUG PRODUCT: METAPROTERENOL SULFATE
Active Ingredient: METAPROTERENOL SULFATE
Strength: 10MG/5ML
Dosage Form/Route: SYRUP;ORAL
Application: A075235 | Product #001
Applicant: APOTEX INC
Approved: Jan 27, 2000 | RLD: No | RS: No | Type: DISCN